FAERS Safety Report 5228534-0 (Version None)
Quarter: 2007Q1

REPORT INFORMATION
  Report Type: 
  Country: None (occurrence: None)
  Receive Date: 20070131
  Receipt Date: 20070127
  Transmission Date: 20070707
  Serious: Yes (Other)
  Sender: FDA-Public Use
  Company Number: 229678

PATIENT
  Age: 38 Year
  Sex: Male
  Weight: 69.8 kg

DRUGS (3)
  1. AVASTIN [Suspect]
     Indication: COLON CANCER
     Dosage: 524 MG, Q3W, INTRAVENOUS
     Route: 042
     Dates: start: 20051115, end: 20060831
  2. CAPECITABINE (CAPECITABINE) [Suspect]
     Indication: COLON CANCER
     Dosage: 1800 MG, BID, ORAL
     Route: 048
     Dates: start: 20051115
  3. OXALIPLATIN [Suspect]
     Indication: COLON CANCER
     Dosage: 247 MG, Q3W, INTRAVENOUS
     Route: 042
     Dates: start: 20051115

REACTIONS (1)
  - IDIOPATHIC THROMBOCYTOPENIC PURPURA [None]
